FAERS Safety Report 13989520 (Version 1)
Quarter: 2017Q3

REPORT INFORMATION
  Report Type: Spontaneous
  Country: US (occurrence: US)
  Receive Date: 20170920
  Receipt Date: 20170920
  Transmission Date: 20171128
  Serious: Yes (Hospitalization, Disabling)
  Sender: FDA-Public Use
  Company Number: US-WEST-WARD PHARMACEUTICALS CORP.-US-H14001-17-03475

PATIENT
  Age: 66 Year
  Sex: Male

DRUGS (2)
  1. LITHIUM CARBONATE. [Suspect]
     Active Substance: LITHIUM CARBONATE
     Indication: BIPOLAR DISORDER
     Route: 065
  2. LISINOPRIL. [Concomitant]
     Active Substance: LISINOPRIL
     Indication: HYPERTENSION
     Route: 065

REACTIONS (14)
  - Memory impairment [Not Recovered/Not Resolved]
  - Incontinence [Recovered/Resolved]
  - Dysarthria [Recovered/Resolved]
  - Tremor [Recovered/Resolved]
  - Acute kidney injury [Unknown]
  - Ataxia [Recovered/Resolved]
  - Lethargy [Recovered/Resolved]
  - Moaning [Recovered/Resolved]
  - Toxicity to various agents [Recovered/Resolved with Sequelae]
  - Confusional state [Recovered/Resolved]
  - Hyperreflexia [Recovered/Resolved]
  - Somnolence [Recovered/Resolved]
  - Muscle contractions involuntary [Recovered/Resolved]
  - Myoclonus [Recovered/Resolved]
